FAERS Safety Report 10737060 (Version 2)
Quarter: 2015Q4

REPORT INFORMATION
  Report Type: Spontaneous
  Country: US (occurrence: US)
  Receive Date: 20150126
  Receipt Date: 20151109
  Transmission Date: 20160304
  Serious: Yes (Death)
  Sender: FDA-Public Use
  Company Number: US-ASTRAZENECA-2014SE58747

PATIENT
  Age: 927 Month
  Sex: Female
  Weight: 98.4 kg

DRUGS (16)
  1. BYETTA [Suspect]
     Active Substance: EXENATIDE
     Indication: TYPE 2 DIABETES MELLITUS
     Route: 058
     Dates: start: 20080930
  2. PROPOXYPHENE. [Concomitant]
     Active Substance: PROPOXYPHENE
  3. DARVOCET [Concomitant]
     Active Substance: ACETAMINOPHEN\PROPOXYPHENE HYDROCHLORIDE
  4. IPRATROPIUM [Concomitant]
     Active Substance: IPRATROPIUM
  5. ASACOL [Concomitant]
     Active Substance: MESALAMINE
  6. LASIX [Concomitant]
     Active Substance: FUROSEMIDE
  7. LANTUS [Concomitant]
     Active Substance: INSULIN GLARGINE
     Dates: start: 200606
  8. ALDACTONE [Concomitant]
     Active Substance: SPIRONOLACTONE
     Dates: start: 200606
  9. BYETTA [Suspect]
     Active Substance: EXENATIDE
     Indication: TYPE 2 DIABETES MELLITUS
     Route: 058
     Dates: start: 20051102
  10. LOPRESSOR [Concomitant]
     Active Substance: METOPROLOL TARTRATE
     Dates: start: 200606
  11. REGLAN [Concomitant]
     Active Substance: METOCLOPRAMIDE HYDROCHLORIDE
  12. IMDUR [Concomitant]
     Active Substance: ISOSORBIDE MONONITRATE
  13. TYLENOL [Concomitant]
     Active Substance: ACETAMINOPHEN
  14. BYETTA [Suspect]
     Active Substance: EXENATIDE
     Indication: TYPE 2 DIABETES MELLITUS
     Route: 065
     Dates: start: 2005
  15. PULMICORT TURBUHALER [Concomitant]
     Active Substance: BUDESONIDE
  16. NOVOLOG [Concomitant]
     Active Substance: INSULIN ASPART
     Dates: start: 200606

REACTIONS (2)
  - Multi-organ failure [Fatal]
  - Pancreatic carcinoma metastatic [Fatal]

NARRATIVE: CASE EVENT DATE: 200512
